FAERS Safety Report 18209455 (Version 2)
Quarter: 2020Q3

REPORT INFORMATION
  Report Type: Report from Study
  Country: CA (occurrence: CA)
  Receive Date: 20200828
  Receipt Date: 20200917
  Transmission Date: 20201103
  Serious: Yes (Life-Threatening, Other)
  Sender: FDA-Public Use
  Company Number: CA-HLS-202000946

PATIENT
  Age: 64 Year
  Sex: Male
  Weight: 175 kg

DRUGS (1)
  1. CLOZARIL [Suspect]
     Active Substance: CLOZAPINE
     Indication: BIPOLAR DISORDER
     Route: 048
     Dates: start: 20200707, end: 20200727

REACTIONS (5)
  - Inflammatory marker increased [Recovered/Resolved with Sequelae]
  - Arrhythmia [Unknown]
  - Hypovolaemic shock [Unknown]
  - Diarrhoea [Unknown]
  - Transaminases increased [Unknown]

NARRATIVE: CASE EVENT DATE: 20200729
